FAERS Safety Report 23610483 (Version 2)
Quarter: 2024Q1

REPORT INFORMATION
  Report Type: Spontaneous
  Country: US (occurrence: US)
  Receive Date: 20240308
  Receipt Date: 20240321
  Transmission Date: 20240410
  Serious: Yes (Other)
  Sender: FDA-Public Use
  Company Number: US-AMGEN-USASP2024041952

PATIENT
  Age: 58 Year
  Sex: Female

DRUGS (3)
  1. PROLIA [Suspect]
     Active Substance: DENOSUMAB
     Indication: Product used for unknown indication
     Dosage: UNK
     Route: 065
     Dates: start: 2017
  2. PROLIA [Suspect]
     Active Substance: DENOSUMAB
     Dosage: UNK
     Route: 065
     Dates: start: 20240228
  3. EVENITY [Suspect]
     Active Substance: ROMOSOZUMAB-AQQG
     Indication: Product used for unknown indication
     Dosage: UNK
     Route: 058
     Dates: start: 20231115

REACTIONS (14)
  - Shoulder operation [Unknown]
  - Nephrolithiasis [Unknown]
  - Oropharyngeal pain [Recovering/Resolving]
  - Bone density decreased [Unknown]
  - Feeling abnormal [Unknown]
  - Nausea [Recovered/Resolved]
  - Fatigue [Recovering/Resolving]
  - Arthralgia [Unknown]
  - Headache [Recovering/Resolving]
  - Pruritus [Unknown]
  - Sciatica [Not Recovered/Not Resolved]
  - Urticaria [Recovered/Resolved]
  - Pain in extremity [Not Recovered/Not Resolved]
  - Bone pain [Unknown]

NARRATIVE: CASE EVENT DATE: 20170101
